FAERS Safety Report 8507043-7 (Version None)
Quarter: 2012Q3

REPORT INFORMATION
  Report Type: 
  Country: None (occurrence: None)
  Receive Date: 20120712
  Receipt Date: 20120703
  Transmission Date: 20120928
  Serious: Yes (Hospitalization, Disabling, Other)
  Sender: FDA-Public Use
  Company Number: US-MILLENNIUM PHARMACEUTICALS, INC.-2012-04339

PATIENT
  Sex: Male
  Weight: 88.435 kg

DRUGS (7)
  1. REVLIMID [Suspect]
     Indication: MULTIPLE MYELOMA
     Dosage: 25 MG, CYCLIC
     Route: 048
     Dates: start: 20110725
  2. ADRIAMYCIN PFS [Suspect]
     Indication: MULTIPLE MYELOMA
     Dosage: UNK
     Dates: start: 20110307, end: 20110714
  3. AREDIA [Suspect]
     Indication: HYPERCALCAEMIA
     Dosage: UNK
     Dates: start: 20110307, end: 20110714
  4. VELCADE [Suspect]
     Indication: MULTIPLE MYELOMA
     Dosage: UNK
     Dates: start: 20110307, end: 20110714
  5. VELCADE [Suspect]
     Dosage: 2.6 MG, CYCLIC
     Dates: start: 20110725, end: 20120423
  6. DECADRON [Suspect]
     Indication: MULTIPLE MYELOMA
     Dosage: UNK
     Dates: start: 20110307, end: 20110714
  7. B12-VITAMIN [Concomitant]
     Indication: VITAMIN B12 DEFICIENCY
     Dosage: 2 MG, MONTHLY
     Route: 030

REACTIONS (5)
  - RENAL FAILURE [None]
  - BACK PAIN [None]
  - ANAEMIA [None]
  - JOINT EFFUSION [None]
  - PAIN IN EXTREMITY [None]
